FAERS Safety Report 14419134 (Version 1)
Quarter: 2018Q1

REPORT INFORMATION
  Report Type: Spontaneous
  Country: US (occurrence: US)
  Receive Date: 20180120
  Receipt Date: 20180120
  Transmission Date: 20180509
  Serious: Yes (Disabling)
  Sender: FDA-Public Use
  Company Number: None

PATIENT
  Age: 6 Year
  Sex: Male
  Weight: 23.4 kg

DRUGS (1)
  1. POLYPROPYLENE GLYCOL 3350 [Suspect]
     Active Substance: POLYETHYLENE GLYCOL 3350
     Indication: CONSTIPATION
     Dosage: QUANTITY:1 CUP FULL;?
     Route: 048

REACTIONS (5)
  - Suicidal ideation [None]
  - Self-injurious ideation [None]
  - Depression [None]
  - Oppositional defiant disorder [None]
  - Anxiety [None]

NARRATIVE: CASE EVENT DATE: 20130613
